FAERS Safety Report 14270713 (Version 1)
Quarter: 2017Q4

REPORT INFORMATION
  Report Type: Spontaneous
  Country: DE (occurrence: DE)
  Receive Date: 20171211
  Receipt Date: 20171211
  Transmission Date: 20180321
  Serious: Yes (Other)
  Sender: FDA-Public Use
  Company Number: DE-OTSUKA-DJ20104527

PATIENT

DRUGS (5)
  1. FUROSEMIDE. [Concomitant]
     Active Substance: FUROSEMIDE
     Route: 065
     Dates: start: 20100611
  2. DOMINAL (PROTHIPENDYL HYDROCHLORIDE) [Suspect]
     Active Substance: PROTHIPENDYL HYDROCHLORIDE
     Indication: DELUSION
     Route: 048
     Dates: start: 20100611
  3. NOVALGIN [Concomitant]
     Active Substance: METAMIZOLE SODIUM
     Indication: POLYNEUROPATHY
     Route: 065
     Dates: start: 20100611
  4. FUROSEMIDE. [Concomitant]
     Active Substance: FUROSEMIDE
     Indication: POLYURIA
     Dosage: TAB
     Route: 048
     Dates: start: 20100611
  5. ABILIFY [Suspect]
     Active Substance: ARIPIPRAZOLE
     Indication: DELUSION
     Route: 048
     Dates: start: 20100611, end: 20100616

REACTIONS (1)
  - Electrocardiogram QT prolonged [Recovered/Resolved]

NARRATIVE: CASE EVENT DATE: 201006
